FAERS Safety Report 11939658 (Version 5)
Quarter: 2016Q1

REPORT INFORMATION
  Report Type: Spontaneous
  Country: US (occurrence: US)
  Receive Date: 20160122
  Receipt Date: 20160212
  Transmission Date: 20160526
  Serious: Yes (Other)
  Sender: FDA-Public Use
  Company Number: US-ASTRAZENECA-2016SE04895

PATIENT
  Sex: Male

DRUGS (2)
  1. SEROQUEL XR [Suspect]
     Active Substance: QUETIAPINE FUMARATE
     Indication: SLEEP DISORDER
     Route: 048
  2. SYMBICORT [Suspect]
     Active Substance: BUDESONIDE\FORMOTEROL FUMARATE DIHYDRATE
     Route: 055

REACTIONS (9)
  - Nervous system disorder [Unknown]
  - Neuralgia [Unknown]
  - Restless legs syndrome [Unknown]
  - Product use issue [Unknown]
  - Off label use [Unknown]
  - Pain [Unknown]
  - Emotional distress [Unknown]
  - Distractibility [Unknown]
  - Adverse event [Unknown]
